FAERS Safety Report 22142007 (Version 1)
Quarter: 2023Q1

REPORT INFORMATION
  Report Type: Spontaneous
  Country: US (occurrence: None)
  Receive Date: 20230327
  Receipt Date: 20230327
  Transmission Date: 20230417
  Serious: No
  Sender: FDA-Public Use
  Company Number: 2023A051522

PATIENT
  Sex: Female
  Weight: 80.3 kg

DRUGS (1)
  1. FARXIGA [Suspect]
     Active Substance: DAPAGLIFLOZIN PROPANEDIOL
     Indication: Blood glucose increased
     Route: 048
     Dates: start: 20230220

REACTIONS (3)
  - Fungal infection [Unknown]
  - Pain [Unknown]
  - Pruritus [Unknown]
